FAERS Safety Report 15878634 (Version 2)
Quarter: 2019Q1

REPORT INFORMATION
  Report Type: Spontaneous
  Country: US (occurrence: US)
  Receive Date: 20190128
  Receipt Date: 20190218
  Transmission Date: 20190417
  Serious: No
  Sender: FDA-Public Use
  Company Number: US-PFIZER INC-2017169947

PATIENT
  Age: 13 Year
  Sex: Male
  Weight: 68 kg

DRUGS (4)
  1. GENOTROPIN [Suspect]
     Active Substance: SOMATROPIN
     Dosage: UNK
  2. GENOTROPIN [Suspect]
     Active Substance: SOMATROPIN
     Indication: GROWTH FAILURE
     Dosage: 3 MG, DAILY
     Route: 058
     Dates: start: 201602
  3. GENOTROPIN [Suspect]
     Active Substance: SOMATROPIN
     Dosage: 2.8 MG, ONCE DAILY (EVERY EVENING)
     Route: 058
     Dates: start: 201602
  4. TRILEPTAL [Concomitant]
     Active Substance: OXCARBAZEPINE
     Indication: SEIZURE
     Dosage: 300 MG, DAILY

REACTIONS (4)
  - Device issue [Unknown]
  - Product dose omission [Unknown]
  - Insulin-like growth factor increased [Unknown]
  - Bone density increased [Unknown]

NARRATIVE: CASE EVENT DATE: 201704
